FAERS Safety Report 6190207-8 (Version None)
Quarter: 2009Q2

REPORT INFORMATION
  Report Type: 
  Country: None (occurrence: None)
  Receive Date: 20090427
  Receipt Date: 20080317
  Transmission Date: 20091009
  Serious: Yes (Other)
  Sender: FDA-Public Use
  Company Number: WAES 0803USA02896

PATIENT
  Age: 8 Year
  Sex: Male
  Weight: 35.8342 kg

DRUGS (3)
  1. SINGULAIR [Suspect]
     Indication: RHINITIS ALLERGIC
     Dosage: 5 MG/DAILY/PO
     Route: 048
     Dates: start: 20080301, end: 20080301
  2. SINGULAIR [Suspect]
     Indication: RHINITIS ALLERGIC
     Dosage: 5 MG/DAILY/PO
     Route: 048
     Dates: start: 20071210, end: 20080314
  3. SINGULAIR [Suspect]
     Indication: RHINITIS ALLERGIC
     Dosage: 5 MG/DAILY/PO
     Route: 048
     Dates: start: 20080401, end: 20080401

REACTIONS (1)
  - EPISTAXIS [None]
